FAERS Safety Report 7531787-7 (Version None)
Quarter: 2011Q2

REPORT INFORMATION
  Report Type: 
  Country: None (occurrence: None)
  Receive Date: 20110608
  Receipt Date: 20110601
  Transmission Date: 20111010
  Serious: Yes (Hospitalization)
  Sender: FDA-Public Use
  Company Number: CO-ROCHE-780173

PATIENT
  Sex: Female

DRUGS (1)
  1. XELODA [Suspect]
     Indication: COLORECTAL CANCER
     Dosage: FREQUENCY:QD
     Route: 048
     Dates: start: 20101122

REACTIONS (2)
  - INTESTINAL OBSTRUCTION [None]
  - SEPTIC SHOCK [None]
